FAERS Safety Report 25668096 (Version 1)
Quarter: 2025Q3

REPORT INFORMATION
  Report Type: Spontaneous
  Country: JP (occurrence: JP)
  Receive Date: 20250812
  Receipt Date: 20250812
  Transmission Date: 20251020
  Serious: Yes (Hospitalization, Other)
  Sender: GALDERMA
  Company Number: JP-GALDERMA-JP2025009669

PATIENT

DRUGS (2)
  1. NEMOLIZUMAB [Suspect]
     Active Substance: NEMOLIZUMAB
     Indication: Neurodermatitis
     Route: 058
  2. CLOBETASOL PROPIONATE [Suspect]
     Active Substance: CLOBETASOL PROPIONATE
     Indication: Neurodermatitis
     Route: 061

REACTIONS (4)
  - Osteonecrosis [Unknown]
  - Optic nerve disorder [Unknown]
  - Alopecia areata [Recovered/Resolved]
  - Fall [Unknown]
